FAERS Safety Report 5719541-X (Version None)
Quarter: 2008Q2

REPORT INFORMATION
  Report Type: 
  Country: None (occurrence: None)
  Receive Date: 20080428
  Receipt Date: 20080423
  Transmission Date: 20081010
  Serious: Yes (Hospitalization)
  Sender: FDA-Public Use
  Company Number: FR-BRISTOL-MYERS SQUIBB COMPANY-14162796

PATIENT
  Age: 47 Year
  Sex: Male

DRUGS (16)
  1. REYATAZ [Suspect]
     Indication: HIV INFECTION
     Dates: start: 20050101, end: 20071231
  2. TRUVADA [Suspect]
     Indication: HIV INFECTION
     Dates: start: 20050101, end: 20071231
  3. REBETOL [Suspect]
     Indication: HEPATITIS C
     Dates: start: 20060901, end: 20071231
  4. VIRAFERON [Suspect]
     Indication: HEPATITIS C
     Dates: start: 20060901, end: 20071231
  5. KABIVEN [Concomitant]
  6. KEPPRA [Concomitant]
  7. TRIFLUCAN [Concomitant]
  8. PERFALGAN [Concomitant]
  9. BACTRIM [Concomitant]
  10. LOVENOX [Concomitant]
     Dosage: 1 DOSAGE FORM = 0.4 (UNITS NOT SPECIFIED)
  11. OMEPRAZOLE [Concomitant]
  12. LEXOMIL [Concomitant]
     Dosage: 1 DOSAGE FORM = 2(UNITS NOT SPECIFIED)
  13. STILNOX [Concomitant]
     Dosage: 1 DOSAGE FORM = 1(UNITS NOT SPECIFIED)
  14. LAROXYL [Concomitant]
     Dosage: 1 DOSAGE FORM = 1(UNITS NOT SPECIFIED)
  15. MORPHINE [Concomitant]
     Route: 058
  16. TRIMEPRAZINE TAB [Concomitant]
     Dosage: FREQUENCY: IN THE EVENING

REACTIONS (3)
  - PANCREATIC CYST [None]
  - PANCREATITIS ACUTE [None]
  - PANCREATITIS RELAPSING [None]
